FAERS Safety Report 7778510-9 (Version None)
Quarter: 2011Q3

REPORT INFORMATION
  Report Type: 
  Country: None (occurrence: None)
  Receive Date: 20110926
  Receipt Date: 20110913
  Transmission Date: 20111222
  Serious: Yes (Other)
  Sender: FDA-Public Use
  Company Number: US-BAYER-2011-028332

PATIENT
  Age: 34 Year
  Sex: Female
  Weight: 122.45 kg

DRUGS (5)
  1. FLUCONAZOLE [Concomitant]
     Dosage: 200 MG, UNK
     Dates: start: 20090302
  2. YAZ [Suspect]
     Indication: PREMENSTRUAL SYNDROME
  3. YAZ [Suspect]
     Indication: CONTRACEPTION
     Dosage: UNK
     Dates: start: 20070801, end: 20090614
  4. TEKTURNA HCT [Concomitant]
     Indication: HYPERTENSION
     Dosage: 25 MG, UNK
     Route: 048
     Dates: start: 20080201
  5. ACETAMINOPHEN AND HYDROCODONE BITARTRATE [Concomitant]
     Dosage: UNK
     Dates: start: 20090303

REACTIONS (7)
  - INJURY [None]
  - GALLBLADDER DISORDER [None]
  - PAIN [None]
  - CHOLECYSTITIS ACUTE [None]
  - ANXIETY [None]
  - ANHEDONIA [None]
  - CHOLELITHIASIS [None]
